FAERS Safety Report 14103290 (Version 3)
Quarter: 2017Q4

REPORT INFORMATION
  Report Type: Spontaneous
  Country: CA (occurrence: CA)
  Receive Date: 20171018
  Receipt Date: 20171103
  Transmission Date: 20180321
  Serious: Yes (Other)
  Sender: FDA-Public Use
  Company Number: CA-PFIZER INC-2017440547

PATIENT
  Age: 52 Year
  Sex: Female

DRUGS (6)
  1. EFFEXOR [Concomitant]
     Active Substance: VENLAFAXINE HYDROCHLORIDE
     Dosage: 75 MG, 1X/DAY
     Route: 048
     Dates: start: 201606
  2. ASMANEX [Concomitant]
     Active Substance: MOMETASONE FUROATE
     Dosage: 1 DF, 1X/DAY
     Route: 055
     Dates: start: 201609
  3. PREDNISONE. [Concomitant]
     Active Substance: PREDNISONE
     Dosage: 10 MG, DAILY
     Route: 048
     Dates: start: 201604
  4. TECTA [Concomitant]
     Active Substance: PANTOPRAZOLE MAGNESIUM
     Dosage: UNK UNK, DAILY
     Route: 048
     Dates: start: 201604
  5. METHOTREXATE SODIUM. [Suspect]
     Active Substance: METHOTREXATE SODIUM
     Dosage: 25 MG, WEEKLY
     Route: 058
     Dates: start: 201608, end: 201611
  6. ZENHALE [Concomitant]
     Active Substance: FORMOTEROL FUMARATE\MOMETASONE FUROATE
     Dosage: 2 DF, 2X/DAY
     Route: 055
     Dates: start: 201601

REACTIONS (5)
  - Immunosuppression [Unknown]
  - Abdominal discomfort [Unknown]
  - Treatment failure [Unknown]
  - Drug hypersensitivity [Unknown]
  - Respiratory tract infection [Unknown]
